FAERS Safety Report 5887492-6 (Version None)
Quarter: 2008Q3

REPORT INFORMATION
  Report Type: 
  Country: None (occurrence: None)
  Receive Date: 20080918
  Receipt Date: 20080909
  Transmission Date: 20090109
  Serious: Yes (Hospitalization)
  Sender: FDA-Public Use
  Company Number: US-ALLERGAN-0808846US

PATIENT
  Sex: Female

DRUGS (3)
  1. BOTOX COSMETIC [Suspect]
     Indication: SKIN WRINKLING
     Dosage: UNK, SINGLE
     Route: 030
     Dates: start: 20071106, end: 20071106
  2. BOTOX COSMETIC [Suspect]
     Dosage: 54 UNITS, SINGLE
     Route: 030
     Dates: start: 20080709, end: 20080709
  3. JUVEDERM [Suspect]
     Indication: SKIN WRINKLING
     Dosage: UNK, SINGLE
     Route: 023
     Dates: start: 20080709, end: 20080709

REACTIONS (4)
  - HEADACHE [None]
  - IMMUNE SYSTEM DISORDER [None]
  - SEPTIC SHOCK [None]
  - WHITE BLOOD CELL COUNT DECREASED [None]
